FAERS Safety Report 9792908 (Version 1)
Quarter: 2014Q1

REPORT INFORMATION
  Report Type: Spontaneous
  Country: US (occurrence: US)
  Receive Date: 20140102
  Receipt Date: 20140102
  Transmission Date: 20141002
  Serious: No
  Sender: FDA-Public Use
  Company Number: US-SANOFI-AVENTIS-2013SA051154

PATIENT
  Age: 63 Year
  Sex: Female

DRUGS (3)
  1. AUBAGIO [Suspect]
     Indication: MULTIPLE SCLEROSIS
     Route: 048
     Dates: start: 20130513, end: 20130911
  2. CIPROFLOXACIN [Concomitant]
     Indication: URINARY TRACT INFECTION
  3. FENTANYL [Concomitant]

REACTIONS (3)
  - Pruritus [Not Recovered/Not Resolved]
  - Alopecia [Unknown]
  - Hepatic enzyme increased [Unknown]
